FAERS Safety Report 24726324 (Version 1)
Quarter: 2024Q4

REPORT INFORMATION
  Report Type: Spontaneous
  Country: US (occurrence: US)
  Receive Date: 20241212
  Receipt Date: 20241212
  Transmission Date: 20250115
  Serious: No
  Sender: MYLAN
  Company Number: US-MYLANLABS-2024M1106142

PATIENT
  Age: 76 Year
  Sex: Female

DRUGS (1)
  1. WIXELA INHUB [Suspect]
     Active Substance: FLUTICASONE PROPIONATE\SALMETEROL XINAFOATE
     Indication: Product used for unknown indication
     Dosage: 250/ 50 MICROGRAM
     Route: 055

REACTIONS (3)
  - Cough [Unknown]
  - Device delivery system issue [Unknown]
  - Drug dose omission by device [Unknown]

NARRATIVE: CASE EVENT DATE: 20241101
